FAERS Safety Report 5906853-X (Version None)
Quarter: 2008Q3

REPORT INFORMATION
  Report Type: 
  Country: None (occurrence: None)
  Receive Date: 20080929
  Receipt Date: 20080926
  Transmission Date: 20090109
  Serious: Yes (Other)
  Sender: FDA-Public Use
  Company Number: S08-USA-01969-01

PATIENT
  Age: 62 Year
  Sex: Male

DRUGS (3)
  1. DILTIAZEM [Suspect]
     Indication: ANGINA UNSTABLE
     Dosage: 240 MG, (240 MG, 1 IN 1 D), ORAL
     Route: 048
     Dates: start: 20040101
  2. DYAZIDE [Concomitant]
  3. TOPROL-XL [Concomitant]

REACTIONS (7)
  - DILATATION VENTRICULAR [None]
  - EJECTION FRACTION DECREASED [None]
  - ELECTROCARDIOGRAM ST SEGMENT ABNORMAL [None]
  - LEFT VENTRICULAR HYPERTROPHY [None]
  - MITRAL VALVE INCOMPETENCE [None]
  - PULMONARY HYPERTENSION [None]
  - TRICUSPID VALVE INCOMPETENCE [None]
